FAERS Safety Report 18058495 (Version 1)
Quarter: 2020Q3

REPORT INFORMATION
  Report Type: Spontaneous
  Country: US (occurrence: US)
  Receive Date: 20200723
  Receipt Date: 20200723
  Transmission Date: 20201103
  Serious: No
  Sender: FDA-Public Use
  Company Number: US-JNJFOC-20200727926

PATIENT
  Age: 55 Year
  Sex: Male
  Weight: 74.91 kg

DRUGS (2)
  1. TYLENOL 8 HR ARTHRITIS PAIN [Suspect]
     Active Substance: ACETAMINOPHEN
     Indication: PRODUCT USED FOR UNKNOWN INDICATION
     Dosage: 3 CAPLETS IN THE MORNING, 3 AT LUNCH, AND 3 IN THE AFTERNOON
     Route: 048
     Dates: start: 202005, end: 202007
  2. TYLENOL 8 HR ARTHRITIS PAIN [Suspect]
     Active Substance: ACETAMINOPHEN
     Route: 048
     Dates: start: 202007

REACTIONS (3)
  - Overdose [Unknown]
  - Feeling abnormal [Not Recovered/Not Resolved]
  - Joint swelling [Recovered/Resolved]

NARRATIVE: CASE EVENT DATE: 2020
